FAERS Safety Report 7720857-6 (Version None)
Quarter: 2011Q3

REPORT INFORMATION
  Report Type: 
  Country: None (occurrence: None)
  Receive Date: 20110825
  Receipt Date: 20110811
  Transmission Date: 20111222
  Serious: Yes (Hospitalization)
  Sender: FDA-Public Use
  Company Number: 15939127

PATIENT
  Age: 65 Year
  Sex: Female

DRUGS (7)
  1. IRON (IRON PREPARATION) [Concomitant]
  2. ENOXAPARIN SODIUM [Suspect]
     Indication: EMBOLISM
  3. PLACEBO [Suspect]
     Indication: EMBOLISM
     Route: 048
     Dates: start: 20110721
  4. WARFARIN SODIUM [Suspect]
     Indication: EMBOLISM
     Dosage: 2 MILLIGRAM 1 DAY
     Route: 048
     Dates: start: 20110721, end: 20110730
  5. RANITIDINE [Concomitant]
  6. APIXABAN [Suspect]
     Indication: EMBOLISM
     Dosage: 10 MILLIGRAM 1 DAY
     Route: 048
     Dates: start: 20110721, end: 20110731
  7. DEXAMETHASONE [Concomitant]

REACTIONS (5)
  - PULMONARY AMYLOIDOSIS [None]
  - UPPER GASTROINTESTINAL HAEMORRHAGE [None]
  - GAMMA-GLUTAMYLTRANSFERASE INCREASED [None]
  - HAEMATOCRIT DECREASED [None]
  - HAEMOGLOBIN DECREASED [None]
